FAERS Safety Report 6203582-2 (Version None)
Quarter: 2009Q2

REPORT INFORMATION
  Report Type: 
  Country: None (occurrence: None)
  Receive Date: 20090522
  Receipt Date: 20090522
  Transmission Date: 20091009
  Serious: Yes (Other)
  Sender: FDA-Public Use
  Company Number: None

PATIENT
  Age: 56 Year
  Sex: Female
  Weight: 86.1834 kg

DRUGS (2)
  1. LEVAQUIN [Suspect]
     Indication: ANIMAL BITE
     Dosage: 750 MG 1/DAY PO
     Route: 048
  2. LEVAQUIN [Suspect]
     Indication: INFECTED BITES
     Dosage: 750 MG 1/DAY PO
     Route: 048

REACTIONS (4)
  - GAIT DISTURBANCE [None]
  - PAIN [None]
  - SWELLING [None]
  - TENDONITIS [None]
